FAERS Safety Report 10243762 (Version 2)
Quarter: 2014Q3

REPORT INFORMATION
  Report Type: Report from Study
  Country: CO (occurrence: CO)
  Receive Date: 20140618
  Receipt Date: 20140819
  Transmission Date: 20150326
  Serious: Yes (Hospitalization, Other)
  Sender: FDA-Public Use
  Company Number: CO-ABBVIE-14P-036-1248501-00

PATIENT
  Age: 47 Year
  Sex: Male
  Weight: 87 kg

DRUGS (1)
  1. HUMIRA [Suspect]
     Active Substance: ADALIMUMAB
     Indication: RHEUMATOID ARTHRITIS
     Route: 058
     Dates: start: 20140509, end: 20140523

REACTIONS (10)
  - Rib fracture [Not Recovered/Not Resolved]
  - Candiduria [Not Recovered/Not Resolved]
  - Lung infection pseudomonal [Unknown]
  - Pneumothorax traumatic [Not Recovered/Not Resolved]
  - Gastrointestinal injury [Not Recovered/Not Resolved]
  - Pelvic fracture [Not Recovered/Not Resolved]
  - Victim of crime [Not Recovered/Not Resolved]
  - Pyrexia [Not Recovered/Not Resolved]
  - Gastric perforation [Not Recovered/Not Resolved]
  - Gun shot wound [Not Recovered/Not Resolved]

NARRATIVE: CASE EVENT DATE: 20140605
